FAERS Safety Report 12170547 (Version 1)
Quarter: 2016Q1

REPORT INFORMATION
  Report Type: Spontaneous
  Country: US (occurrence: None)
  Receive Date: 20160310
  Receipt Date: 20160310
  Transmission Date: 20160526
  Serious: Yes (Disabling, Other)
  Sender: FDA-Public Use
  Company Number: None

PATIENT
  Age: 61 Year
  Sex: Female
  Weight: 74.39 kg

DRUGS (1)
  1. COLGATE BAKING SODA AND PEROXIDE WHITENING BRISK MINT [Suspect]
     Active Substance: SODIUM MONOFLUOROPHOSPHATE
     Indication: DENTAL DISORDER PROPHYLAXIS
     Dosage: THREE TIMES AFTER MEAL, ORAL. BRUSHING
     Route: 048
     Dates: start: 20160229, end: 20160303

REACTIONS (2)
  - Paraesthesia [None]
  - Tooth discolouration [None]

NARRATIVE: CASE EVENT DATE: 20160229
